FAERS Safety Report 9849053 (Version 1)
Quarter: 2013Q4

REPORT INFORMATION
  Report Type: Spontaneous
  Country: US (occurrence: None)
  Receive Date: 20131226
  Receipt Date: 20131226
  Transmission Date: 20140711
  Serious: Yes (Disabling)
  Sender: FDA-Public Use
  Company Number: PHEH2013US017684

PATIENT
  Age: 81 Year
  Sex: Male

DRUGS (3)
  1. ARCAPTA (INDACATEROL) UNKNOWN [Suspect]
     Indication: CHRONIC OBSTRUCTIVE PULMONARY DISEASE
     Route: 055
     Dates: start: 20130625, end: 20130829
  2. ATROVENT HFA (IPRATROPIUM BROMIDE) [Concomitant]
  3. XOPENEX (LEVOSALBUTAMOL HYDROCHLORIDE) [Concomitant]

REACTIONS (1)
  - Tachycardia [None]
